FAERS Safety Report 13617122 (Version 1)
Quarter: 2017Q2

REPORT INFORMATION
  Report Type: Spontaneous
  Country: US (occurrence: US)
  Receive Date: 20170606
  Receipt Date: 20170606
  Transmission Date: 20170830
  Serious: No
  Sender: FDA-Public Use
  Company Number: US-SA-2016SA190310

PATIENT
  Age: 73 Year
  Sex: Female

DRUGS (3)
  1. TOUJEO [Concomitant]
     Active Substance: INSULIN GLARGINE
     Dosage: DOSE:30 UNIT(S)
  2. LANTUS [Suspect]
     Active Substance: INSULIN GLARGINE
     Indication: TYPE 2 DIABETES MELLITUS
     Dosage: CUT THE DOSE IN HALF
     Route: 065
     Dates: start: 2016, end: 201610
  3. LANTUS [Suspect]
     Active Substance: INSULIN GLARGINE
     Indication: TYPE 2 DIABETES MELLITUS
     Dosage: CUT THE DOSE IN HALF
     Route: 065
     Dates: start: 2015

REACTIONS (6)
  - Insomnia [Unknown]
  - Condition aggravated [Unknown]
  - Restlessness [Unknown]
  - Nasal congestion [Unknown]
  - Blood glucose increased [Unknown]
  - Product use issue [Unknown]
